FAERS Safety Report 20719881 (Version 1)
Quarter: 2022Q2

REPORT INFORMATION
  Report Type: Report from Study
  Country: IN (occurrence: IN)
  Receive Date: 20220418
  Receipt Date: 20220418
  Transmission Date: 20220721
  Serious: Yes (Other)
  Sender: FDA-Public Use
  Company Number: IN-NOVARTISPH-PHHY2018IN003767

PATIENT
  Age: 60 Year
  Sex: Female

DRUGS (45)
  1. SIMULECT [Suspect]
     Active Substance: BASILIXIMAB
     Indication: Renal transplant
     Dosage: 20 MG, UNK
     Route: 042
     Dates: start: 20180418
  2. SIMULECT [Suspect]
     Active Substance: BASILIXIMAB
     Dosage: UNK
     Route: 042
     Dates: start: 20180422, end: 20180422
  3. AMIKACIN [Concomitant]
     Active Substance: AMIKACIN
     Indication: Product used for unknown indication
     Dosage: UNK (SUSCEPTIBILITY IS SENSITIVE, MIC VALUE {=2)
     Route: 065
  4. AMOXICILLIN [Concomitant]
     Active Substance: AMOXICILLIN
     Indication: Product used for unknown indication
     Dosage: UNK (SUSCEPTIBILITY IS RESISTANT)
     Route: 065
  5. AMPICILLIN [Concomitant]
     Active Substance: AMPICILLIN
     Indication: Product used for unknown indication
     Dosage: UNK (SUSCEPTIBILITY IS RESISTANT, MIC VALUE }=32)
     Route: 065
  6. CEFEPIME [Concomitant]
     Active Substance: CEFEPIME HYDROCHLORIDE
     Indication: Product used for unknown indication
     Dosage: UNK (SUSCEPTIBILITY IS SENSITIVE, MIC VALUE 2)
     Route: 065
  7. CEFOPERAZONE SODIUM\SULBACTAM [Concomitant]
     Active Substance: CEFOPERAZONE SODIUM\SULBACTAM
     Indication: Product used for unknown indication
     Dosage: UNK (SUSCEPTIBILITY IS SENSITIVE, MIC VALUE {=8)
     Route: 065
  8. CEFOTAXIME [Concomitant]
     Active Substance: CEFOTAXIME SODIUM
     Indication: Product used for unknown indication
     Dosage: UNK (SUSCEPTIBILITY IS RESISTANT)
     Route: 065
  9. CEFTRIAXONE [Concomitant]
     Active Substance: CEFTRIAXONE
     Indication: Product used for unknown indication
     Dosage: UNK  (SUSCEPTIBILITY IS RESISTANT, MIC VALUE }=64)
     Route: 065
  10. CEFUROXIME [Concomitant]
     Active Substance: CEFUROXIME
     Indication: Product used for unknown indication
     Dosage: UNK (SUSCEPTIBILITY IS RESISTANT, MIC VALUE }=64)
     Route: 065
  11. CEFUROXIME AXETIL [Concomitant]
     Active Substance: CEFUROXIME AXETIL
     Indication: Product used for unknown indication
     Dosage: UNK (SUSCEPTIBILITY IS RESISTANT, MIC VALUE }=64
     Route: 065
  12. CIPROFLOXACIN [Concomitant]
     Active Substance: CIPROFLOXACIN
     Indication: Product used for unknown indication
     Dosage: UNK (SUSCEPTIBILITY IS RESISTANT, MIC VALUE }=4)
     Route: 065
  13. ERTAPENEM [Concomitant]
     Active Substance: ERTAPENEM
     Indication: Product used for unknown indication
     Dosage: UNK (SUSCEPTIBILITY IS SENSITIVE, MIC VALUE {=0.5)
     Route: 065
  14. GENTAMICIN [Concomitant]
     Active Substance: GENTAMICIN
     Indication: Product used for unknown indication
     Dosage: UNK (SUSCEPTIBILITY IS SENSITIVE, MIC VALUE {=1)
     Route: 065
  15. IMIPENEM [Concomitant]
     Active Substance: IMIPENEM
     Indication: Product used for unknown indication
     Dosage: UNK (SUSCEPTIBILITY IS SENSITIVE, MIC VALUE {=0.25)
     Route: 065
  16. MEROPENEM [Concomitant]
     Active Substance: MEROPENEM
     Indication: Product used for unknown indication
     Dosage: UNK (SUSCEPTIBILITY IS SENSITIVE, MIC VALUE {=0.25)
     Route: 065
  17. NALIDIXIC ACID [Concomitant]
     Active Substance: NALIDIXIC ACID
     Indication: Product used for unknown indication
     Dosage: UNK (SUSCEPTIBILITY IS RESISTANT, MIC VALUE }=32)
     Route: 065
  18. NITROFURANTOIN [Concomitant]
     Active Substance: NITROFURANTOIN
     Indication: Product used for unknown indication
     Dosage: UNK (SUSCEPTIBILITY IS RESISTANT, MIC VALUE =128)
     Route: 065
  19. PIPERACILLIN AND TAZOBACTAM [Concomitant]
     Active Substance: PIPERACILLIN SODIUM\TAZOBACTAM SODIUM
     Indication: Product used for unknown indication
     Dosage: UNK (SUSCEPTIBILITY IS SENSITIVE, MIC VALUE =16)
     Route: 065
  20. SULFAMETHOXAZOLE\TRIMETHOPRIM [Concomitant]
     Active Substance: SULFAMETHOXAZOLE\TRIMETHOPRIM
     Indication: Product used for unknown indication
     Dosage: UNK (SUSCEPTIBILITY IS RESISTANT, MIC VALUE {=320)
     Route: 065
  21. EMISET [Concomitant]
     Indication: Product used for unknown indication
     Dosage: UNK (CONCENTATION IS 2MG/ML)
     Route: 065
  22. NIFEDIPINE [Concomitant]
     Active Substance: NIFEDIPINE
     Indication: Product used for unknown indication
     Dosage: UNK (1-1-1, 6 AM- 1 PM- 11PM) 3 DAYS
     Route: 065
  23. CREMAFFIN [Concomitant]
     Indication: Product used for unknown indication
     Dosage: UNK
     Route: 065
  24. STAFCURE [Concomitant]
     Indication: Product used for unknown indication
     Dosage: UNK
     Route: 065
  25. ISTAVEL [Concomitant]
     Indication: Product used for unknown indication
     Dosage: UNK
     Route: 065
  26. WEPOX [Concomitant]
     Indication: Product used for unknown indication
     Dosage: UNK
     Route: 065
  27. METOLAR [Concomitant]
     Indication: Product used for unknown indication
     Dosage: UNK (CONCENTATION IS 1MG/ML)
     Route: 065
  28. SHEL D [Concomitant]
     Indication: Product used for unknown indication
     Dosage: UNK (1-0-1) 3 DAYS
     Route: 065
  29. DUOLIN [Concomitant]
     Indication: Product used for unknown indication
     Dosage: UNK
     Route: 065
  30. PANTOCID [Concomitant]
     Indication: Product used for unknown indication
     Dosage: UNK (CONCENTRATION IS GIVEN AS 40)
     Route: 065
  31. FUROSEMIDE [Concomitant]
     Active Substance: FUROSEMIDE
     Indication: Product used for unknown indication
     Dosage: UNK
     Route: 065
  32. MYFORTIC [Concomitant]
     Active Substance: MYCOPHENOLATE SODIUM
     Indication: Product used for unknown indication
     Dosage: UNK
     Route: 065
  33. MYFORTIC [Concomitant]
     Active Substance: MYCOPHENOLATE SODIUM
     Dosage: 360 MG (2-0-2, 7AM-7PM, 3 DAYS)UNK
     Route: 065
  34. SULFAMETHOXAZOLE\TRIMETHOPRIM [Concomitant]
     Active Substance: SULFAMETHOXAZOLE\TRIMETHOPRIM
     Indication: Product used for unknown indication
     Dosage: UNK
     Route: 065
  35. SULFAMETHOXAZOLE\TRIMETHOPRIM [Concomitant]
     Active Substance: SULFAMETHOXAZOLE\TRIMETHOPRIM
     Dosage: UNK (0-0-1/2, 3 DAYS)
     Route: 065
  36. SODIUM CHLORIDE [Concomitant]
     Active Substance: SODIUM CHLORIDE
     Indication: Product used for unknown indication
     Dosage: UNK (100ML)
     Route: 065
  37. CEFTUM [Concomitant]
     Indication: Product used for unknown indication
     Dosage: UNK
     Route: 065
  38. BECOSULES [Concomitant]
     Indication: Product used for unknown indication
     Dosage: UNK
     Route: 065
  39. BECOSULES [Concomitant]
     Dosage: 5 ML, QD (3 DAYS)
     Route: 065
  40. VALCHEK [Concomitant]
     Indication: Product used for unknown indication
     Dosage: 450 MG, (0-0-1/2, 3 DAYS)
     Route: 065
  41. RANITIDINE HYDROCHLORIDE [Concomitant]
     Active Substance: RANITIDINE HYDROCHLORIDE
     Indication: Product used for unknown indication
     Dosage: 150 MG (1-0-1), 30 MINUTES BEFORE FOOD, 3 DAYS)
     Route: 065
  42. PREDNISOLONE [Concomitant]
     Active Substance: PREDNISOLONE
     Indication: Product used for unknown indication
     Dosage: 12.5 MG, (1-0-0, AFTER BREAKFAST, 8 AM, 3 DAYS)
     Route: 065
  43. INSULIN HUMAN [Concomitant]
     Active Substance: INSULIN HUMAN
     Indication: Product used for unknown indication
     Dosage: (30/70) 2-0-2 UNITS SUBCUTANEOUS, 30 MINUTES BEFORE FOOD
     Route: 065
  44. ENZOHEAL [Concomitant]
     Indication: Product used for unknown indication
     Dosage: UNK (FOR LOCAL APPLICATION TWICE DAILY OVER SUTURE SITE FOR 3 DAYS)
     Route: 065
  45. DILTIAZEM [Concomitant]
     Active Substance: DILTIAZEM
     Indication: Product used for unknown indication
     Dosage: 30 MG, (1-1-1, 10 AM-2 AM- 9 PM), 3 DAYS
     Route: 065

REACTIONS (14)
  - Transplant dysfunction [Recovering/Resolving]
  - Glomerulonephritis [Unknown]
  - Kidney transplant rejection [Unknown]
  - Transplant rejection [Unknown]
  - Renal disorder [Unknown]
  - Hyperglycaemia [Unknown]
  - Anaemia [Unknown]
  - Pelvic adhesions [Unknown]
  - Urine output decreased [Unknown]
  - Blood creatinine increased [Unknown]
  - Angiogram abnormal [Unknown]
  - Urinary tract infection [Recovered/Resolved]
  - Hypertension [Unknown]
  - Oliguria [Unknown]

NARRATIVE: CASE EVENT DATE: 20180430
